FAERS Safety Report 9948554 (Version 1)
Quarter: 2014Q1

REPORT INFORMATION
  Report Type: Report from Study
  Country: US (occurrence: US)
  Receive Date: 20140304
  Receipt Date: 20140304
  Transmission Date: 20141002
  Serious: Yes (Other)
  Sender: FDA-Public Use
  Company Number: US-ROCHE-1346432

PATIENT
  Sex: Female

DRUGS (3)
  1. LUCENTIS [Suspect]
     Indication: RETINAL VEIN OCCLUSION
     Route: 050
  2. AVASTIN [Suspect]
     Indication: RETINAL VEIN OCCLUSION
     Route: 050
  3. DIAZEPAM [Concomitant]
     Route: 065

REACTIONS (10)
  - Eye discharge [Unknown]
  - Dry eye [Unknown]
  - Vitreous floaters [Unknown]
  - Nausea [Unknown]
  - Sensation of heaviness [Unknown]
  - Visual impairment [Unknown]
  - Intraocular pressure increased [Recovered/Resolved]
  - C-reactive protein increased [Unknown]
  - Road traffic accident [Unknown]
  - Headache [Unknown]
